FAERS Safety Report 6584408-4 (Version None)
Quarter: 2010Q1

REPORT INFORMATION
  Report Type: 
  Country: None (occurrence: None)
  Receive Date: 20100216
  Receipt Date: 20100128
  Transmission Date: 20100710
  Serious: No
  Sender: FDA-Public Use
  Company Number: US-ABBOTT-10P-163-0622990-00

PATIENT
  Sex: Male
  Weight: 72.64 kg

DRUGS (5)
  1. SIMCOR [Suspect]
     Indication: BLOOD CHOLESTEROL INCREASED
     Dosage: 500/20 MG
     Dates: start: 20090101
  2. SIMCOR [Suspect]
     Indication: PREDISPOSITION TO DISEASE
     Dosage: 1000/20 MG TWO PILLS NIGHTLY
  3. SIMCOR [Suspect]
     Dosage: 1000/20 MG NIGHTLY
  4. COUMADIN [Concomitant]
     Indication: DRUG USE FOR UNKNOWN INDICATION
     Route: 048
  5. BISTOL [Concomitant]
     Indication: DRUG USE FOR UNKNOWN INDICATION
     Route: 048

REACTIONS (2)
  - FEELING HOT [None]
  - MUSCULOSKELETAL STIFFNESS [None]
